FAERS Safety Report 6130533-1 (Version None)
Quarter: 2009Q1

REPORT INFORMATION
  Report Type: 
  Country: None (occurrence: None)
  Receive Date: 20090323
  Receipt Date: 20090309
  Transmission Date: 20090719
  Serious: Yes (Other)
  Sender: FDA-Public Use
  Company Number: 233768J08USA

PATIENT
  Age: 50 Year
  Sex: Female

DRUGS (1)
  1. REBIF [Suspect]
     Indication: MULTIPLE SCLEROSIS
     Dosage: 44 MCG, 3 IN 1 WEEKS, SUBCUTANEOUS
     Route: 058
     Dates: start: 20050330

REACTIONS (5)
  - BONE GRAFT [None]
  - GINGIVAL INFECTION [None]
  - NO THERAPEUTIC RESPONSE [None]
  - RESORPTION BONE INCREASED [None]
  - SNEEZING [None]
